FAERS Safety Report 20381298 (Version 1)
Quarter: 2022Q1

REPORT INFORMATION
  Report Type: Spontaneous
  Country: US (occurrence: US)
  Receive Date: 20220127
  Receipt Date: 20220127
  Transmission Date: 20220423
  Serious: No
  Sender: FDA-Public Use
  Company Number: US-ELI_LILLY_AND_COMPANY-US202201009390

PATIENT
  Age: 45 Year
  Sex: Female

DRUGS (2)
  1. TALTZ [Suspect]
     Active Substance: IXEKIZUMAB
     Indication: Product used for unknown indication
     Dosage: 80 MG, OTHER (LOADING DOSE)
     Route: 058
     Dates: start: 202112
  2. TALTZ [Suspect]
     Active Substance: IXEKIZUMAB
     Dosage: 80 MG, UNKNOWN (EVERY 2 WEEKS)
     Route: 058

REACTIONS (1)
  - Psoriasis [Unknown]

NARRATIVE: CASE EVENT DATE: 20211230
